FAERS Safety Report 19029194 (Version 3)
Quarter: 2021Q2

REPORT INFORMATION
  Report Type: Spontaneous
  Country: US (occurrence: US)
  Receive Date: 20210318
  Receipt Date: 20210519
  Transmission Date: 20210717
  Serious: No
  Sender: FDA-Public Use
  Company Number: US-ASTRAZENECA-2021A096224

PATIENT
  Age: 29309 Day
  Sex: Male
  Weight: 71.2 kg

DRUGS (1)
  1. SYMBICORT [Suspect]
     Active Substance: BUDESONIDE\FORMOTEROL FUMARATE DIHYDRATE
     Indication: IDIOPATHIC PULMONARY FIBROSIS
     Dosage: 160 MCG 2 PUFFS BID
     Route: 055

REACTIONS (4)
  - Device malfunction [Unknown]
  - Off label use [Unknown]
  - Intentional product misuse [Unknown]
  - Dyspnoea [Not Recovered/Not Resolved]

NARRATIVE: CASE EVENT DATE: 20210226
